FAERS Safety Report 6746028-8 (Version None)
Quarter: 2010Q2

REPORT INFORMATION
  Report Type: 
  Country: None (occurrence: None)
  Receive Date: 20100528
  Receipt Date: 20100517
  Transmission Date: 20101027
  Serious: Yes (Hospitalization)
  Sender: FDA-Public Use
  Company Number: ES-ELI_LILLY_AND_COMPANY-ES201005004719

PATIENT
  Sex: Male

DRUGS (9)
  1. FORTEO [Suspect]
     Indication: OSTEOPOROSIS
     Dosage: 20 UG, DAILY (1/D)
     Route: 058
     Dates: start: 20100409, end: 20100502
  2. CARDURA [Concomitant]
     Indication: HYPERTENSION
     Dosage: 4 MG, DAILY (1/D)
     Route: 065
  3. PULMENO [Concomitant]
     Indication: BRONCHITIS
     Dosage: UNK, UNKNOWN
     Route: 065
  4. PARACETAMOL [Concomitant]
     Indication: PAIN
     Dosage: 650 MG, DAILY (1/D)
     Route: 048
  5. VILOXAZINE HCL [Concomitant]
     Dosage: UNK, UNKNOWN
     Route: 065
  6. FUROSEMIDE [Concomitant]
     Indication: BRONCHITIS
     Dosage: 40 MG, DAILY (1/D)
     Route: 048
  7. OMEPRAZOLE [Concomitant]
     Indication: GASTRIC DISORDER
     Dosage: UNK, DAILY (1/D)
     Route: 048
  8. ATROVENT [Concomitant]
     Indication: BRONCHITIS
     Dosage: UNK, AS NEEDED
     Route: 048
  9. PULMICORT [Concomitant]
     Indication: BRONCHITIS
     Dosage: UNK, UNKNOWN
     Route: 055

REACTIONS (2)
  - BRONCHOSPASM [None]
  - FATIGUE [None]
